FAERS Safety Report 25916065 (Version 1)
Quarter: 2025Q4

REPORT INFORMATION
  Report Type: Report from Study
  Country: US (occurrence: US)
  Receive Date: 20251013
  Receipt Date: 20251013
  Transmission Date: 20260117
  Serious: Yes (Hospitalization)
  Sender: ABBVIE
  Company Number: US-ABBVIE-6449306

PATIENT
  Age: 67 Year
  Sex: Female
  Weight: 57.606 kg

DRUGS (5)
  1. SYNTHROID [Suspect]
     Active Substance: LEVOTHYROXINE SODIUM
     Indication: Hypothyroidism
     Dosage: FORM STRENGTH: 100 MILLION
     Route: 048
     Dates: start: 2015
  2. PRISTIQ EXTENDED-RELEASE [Concomitant]
     Active Substance: DESVENLAFAXINE SUCCINATE
     Indication: Depression
  3. LEVOTHYROXINE [Suspect]
     Active Substance: LEVOTHYROXINE
     Indication: Product used for unknown indication
     Route: 065
  4. ATORVASTATIN [Concomitant]
     Active Substance: ATORVASTATIN
     Indication: Product used for unknown indication
  5. TRAZODONE [Concomitant]
     Active Substance: TRAZODONE HYDROCHLORIDE
     Indication: Sleep disorder

REACTIONS (13)
  - Paraesthesia [Not Recovered/Not Resolved]
  - Hypersensitivity [Not Recovered/Not Resolved]
  - Nausea [Unknown]
  - Food allergy [Unknown]
  - Illness [Unknown]
  - Dairy intolerance [Unknown]
  - Brain fog [Recovered/Resolved]
  - Therapeutic product effect decreased [Unknown]
  - Disturbance in attention [Recovered/Resolved]
  - Visual impairment [Recovered/Resolved]
  - Memory impairment [Recovered/Resolved]
  - Histamine level increased [Not Recovered/Not Resolved]
  - Dizziness [Not Recovered/Not Resolved]

NARRATIVE: CASE EVENT DATE: 20250101
